FAERS Safety Report 6652972-2 (Version None)
Quarter: 2010Q1

REPORT INFORMATION
  Report Type: 
  Country: None (occurrence: None)
  Receive Date: 20100326
  Receipt Date: 20100315
  Transmission Date: 20100710
  Serious: Yes (Hospitalization, Other)
  Sender: FDA-Public Use
  Company Number: PHEH2005US08928

PATIENT
  Sex: Female
  Weight: 98.866 kg

DRUGS (35)
  1. AREDIA [Suspect]
     Indication: METASTASES TO BONE
     Route: 042
  2. ZOMETA [Suspect]
     Indication: METASTASES TO BONE
     Dosage: EVERY 6 MONTHS
     Route: 042
     Dates: start: 20030106
  3. TAMOXIFEN CITRATE [Concomitant]
     Dosage: 50MG
  4. EFFEXOR [Concomitant]
     Indication: ANXIETY
     Dosage: 75 MG, QD
  5. FEMARA [Concomitant]
     Dates: start: 20060101
  6. HYDROCODONE [Concomitant]
  7. AMBIEN [Concomitant]
     Dosage: 5MG ONE HOUR BEFORE HYPERBARICS
     Route: 048
     Dates: start: 20031007
  8. PERCOCET [Concomitant]
     Dosage: 1 OR 2 TABLETS EVERY FOUR HOURS AS NEEDED
     Route: 048
     Dates: start: 20031006
  9. PHENERGAN ^AVENTIS PHARMA^ [Concomitant]
     Dosage: 125MG EVERY 6 HOURS
     Route: 042
     Dates: start: 20031006
  10. TYLENOL-500 [Concomitant]
     Dosage: 650MG EVERY FOUR HOURS
     Route: 048
  11. MORPHINE [Concomitant]
     Dosage: 1-2MG EVERY HOUR AS NEEDED
     Route: 042
  12. PROMETHAZINE [Concomitant]
  13. OXYCODONE [Concomitant]
  14. POTASSIUM [Concomitant]
  15. STERAPRED [Concomitant]
     Dosage: UNK
     Dates: start: 20020802
  16. AVELOX [Concomitant]
     Dosage: UNK
     Dates: start: 20020130
  17. VICODIN [Concomitant]
  18. VITAMIN D [Concomitant]
  19. OSCAL 500-D [Concomitant]
  20. AROMASIN [Concomitant]
  21. FLORINEF [Concomitant]
  22. FERREX [Concomitant]
  23. TRAZODONE HCL [Concomitant]
  24. FENTANYL [Concomitant]
  25. FLUDROCORTISONE [Concomitant]
  26. DARVOCET-N 100 [Concomitant]
  27. LEVAQUIN [Concomitant]
  28. ALEVE [Concomitant]
  29. AMOXICILLIN [Concomitant]
  30. PERIOSTAT [Concomitant]
  31. HYDROCHLOROTHIAZIDE [Concomitant]
  32. CEFAZOLIN [Concomitant]
  33. DECADRON [Concomitant]
  34. RADIATION THERAPY [Concomitant]
  35. TRAMADOL HCL [Concomitant]

REACTIONS (74)
  - ABSCESS ORAL [None]
  - ACTINOMYCOSIS [None]
  - ANAEMIA [None]
  - ANXIETY [None]
  - ARTHRALGIA [None]
  - BACK PAIN [None]
  - BIOPSY STOMACH [None]
  - BONE DEBRIDEMENT [None]
  - BONE DISORDER [None]
  - BONE GRAFT [None]
  - BREATH ODOUR [None]
  - CATARACT [None]
  - CENTRAL VENOUS CATHETERISATION [None]
  - CHEST PAIN [None]
  - CHRONIC OBSTRUCTIVE PULMONARY DISEASE [None]
  - CHRONIC SINUSITIS [None]
  - CONSTIPATION [None]
  - CONTUSION [None]
  - DEBRIDEMENT [None]
  - DENTAL CARIES [None]
  - DENTURE WEARER [None]
  - DYSPNOEA [None]
  - DYSURIA [None]
  - EAR PAIN [None]
  - ERYTHEMA [None]
  - FACIAL OPERATION [None]
  - FALL [None]
  - FATIGUE [None]
  - FIBROSIS [None]
  - GAIT DISTURBANCE [None]
  - GASTRITIS [None]
  - GASTROINTESTINAL DISORDER [None]
  - GASTROINTESTINAL PAIN [None]
  - GINGIVITIS [None]
  - HAEMANGIOMA OF LIVER [None]
  - HAEMORRHOIDS [None]
  - HEADACHE [None]
  - HYPERBARIC OXYGEN THERAPY [None]
  - INSOMNIA [None]
  - INTERVERTEBRAL DISC PROTRUSION [None]
  - JOINT SWELLING [None]
  - KYPHOSIS [None]
  - MAXILLOFACIAL OPERATION [None]
  - METAPLASIA [None]
  - MUSCULAR WEAKNESS [None]
  - MYELOPATHY [None]
  - NASAL MUCOSAL DISORDER [None]
  - NEURODERMATITIS [None]
  - ORAL INFECTION [None]
  - ORAL MUCOSAL EXFOLIATION [None]
  - ORTHOSIS USER [None]
  - ORTHOSTATIC HYPOTENSION [None]
  - OSTEOARTHRITIS [None]
  - OSTEOMYELITIS [None]
  - OSTEONECROSIS [None]
  - OSTEOPOROSIS [None]
  - PAIN [None]
  - PERIODONTAL OPERATION [None]
  - PERIODONTITIS [None]
  - PERONEAL NERVE PALSY [None]
  - PRIMARY SEQUESTRUM [None]
  - PSEUDOMONAS INFECTION [None]
  - PULMONARY MASS [None]
  - PYREXIA [None]
  - RASH MACULAR [None]
  - RASH MACULO-PAPULAR [None]
  - RASH PRURITIC [None]
  - RESPIRATORY DISORDER [None]
  - SKIN LACERATION [None]
  - SPINAL LAMINECTOMY [None]
  - TOOTH EXTRACTION [None]
  - TOOTH LOSS [None]
  - VAGINAL INFECTION [None]
  - WALKING AID USER [None]
